FAERS Safety Report 5636744-3 (Version None)
Quarter: 2008Q1

REPORT INFORMATION
  Report Type: 
  Country: None (occurrence: None)
  Receive Date: 20080219
  Receipt Date: 20080219
  Transmission Date: 20080703
  Serious: Yes (Disabling)
  Sender: FDA-Public Use
  Company Number: None

PATIENT
  Sex: Female
  Weight: 48.5349 kg

DRUGS (2)
  1. TYKERB [Suspect]
  2. XELODA [Suspect]

REACTIONS (4)
  - DRY SKIN [None]
  - KERATOCONJUNCTIVITIS SICCA [None]
  - LACRIMATION INCREASED [None]
  - RASH [None]
